FAERS Safety Report 19106786 (Version 1)
Quarter: 2021Q2

REPORT INFORMATION
  Report Type: Spontaneous
  Country: US (occurrence: US)
  Receive Date: 20210408
  Receipt Date: 20210408
  Transmission Date: 20210717
  Serious: Yes (Hospitalization, Other)
  Sender: FDA-Public Use
  Company Number: US-APOTEX-2021AP008247

PATIENT
  Sex: Female

DRUGS (1)
  1. CYCLOBENZAPRINE. [Suspect]
     Active Substance: CYCLOBENZAPRINE
     Indication: PAIN
     Dosage: UNK
     Route: 065

REACTIONS (6)
  - Hallucination [Unknown]
  - Delirium [Unknown]
  - Fall [Unknown]
  - Mental status changes [Recovering/Resolving]
  - Pain [Unknown]
  - Toxicity to various agents [Unknown]
